FAERS Safety Report 11567907 (Version 1)
Quarter: 2015Q3

REPORT INFORMATION
  Report Type: Spontaneous
  Country: US (occurrence: US)
  Receive Date: 20150916
  Receipt Date: 20150916
  Transmission Date: 20151125
  Serious: No
  Sender: FDA-Public Use
  Company Number: US-ELI_LILLY_AND_COMPANY-US200908000937

PATIENT
  Age: 50 Year
  Sex: Female

DRUGS (1)
  1. FORTEO [Suspect]
     Active Substance: TERIPARATIDE
     Dosage: UNK, UNK
     Dates: start: 200907, end: 20090801

REACTIONS (9)
  - Injection site bruising [Unknown]
  - Arthralgia [Unknown]
  - Nausea [Unknown]
  - Limb discomfort [Unknown]
  - Musculoskeletal discomfort [Unknown]
  - Heart rate increased [Unknown]
  - Pain in extremity [Unknown]
  - Blood pressure systolic decreased [Unknown]
  - Headache [Unknown]

NARRATIVE: CASE EVENT DATE: 200907
